FAERS Safety Report 12644609 (Version 8)
Quarter: 2017Q2

REPORT INFORMATION
  Report Type: Spontaneous
  Country: US (occurrence: US)
  Receive Date: 20160811
  Receipt Date: 20170601
  Transmission Date: 20170830
  Serious: Yes (Other)
  Sender: FDA-Public Use
  Company Number: PHHY2016US110462

PATIENT
  Age: 36 Year
  Sex: Female

DRUGS (3)
  1. ONDANSETRON HYDROCHLORIDE. [Suspect]
     Active Substance: ONDANSETRON HYDROCHLORIDE
     Indication: VOMITING IN PREGNANCY
     Route: 042
     Dates: start: 199910, end: 199910
  2. ZOFRAN [Suspect]
     Active Substance: ONDANSETRON HYDROCHLORIDE
     Indication: VOMITING IN PREGNANCY
     Dosage: 8 MG, UNK
     Route: 048
     Dates: start: 19991101, end: 20000425
  3. ZOFRAN [Suspect]
     Active Substance: ONDANSETRON HYDROCHLORIDE
     Dosage: 4 MG, UNK
     Route: 048
     Dates: start: 20000426, end: 20000530

REACTIONS (28)
  - Acute chest syndrome [Unknown]
  - Oropharyngeal pain [Unknown]
  - Dyspnoea [Unknown]
  - Product use in unapproved indication [Unknown]
  - Renal tubular atrophy [Unknown]
  - Lyme disease [Unknown]
  - Emotional distress [Unknown]
  - Costochondritis [Unknown]
  - Emphysema [Unknown]
  - Depression [Unknown]
  - Chest pain [Unknown]
  - Glomerulonephritis minimal lesion [Unknown]
  - Premature delivery [Unknown]
  - Pain [Unknown]
  - Oedema peripheral [Unknown]
  - Anxiety [Unknown]
  - Lung hyperinflation [Unknown]
  - Lymphadenopathy [Unknown]
  - Maternal exposure during pregnancy [Unknown]
  - Glomerulosclerosis [Unknown]
  - Renal arteriosclerosis [Unknown]
  - Otitis media [Unknown]
  - Neck pain [Unknown]
  - Pyrexia [Unknown]
  - Pharyngitis [Unknown]
  - Pneumothorax [Unknown]
  - Urinary tract obstruction [Unknown]
  - Nephroptosis [Unknown]

NARRATIVE: CASE EVENT DATE: 20100901
